FAERS Safety Report 18446732 (Version 1)
Quarter: 2020Q4

REPORT INFORMATION
  Report Type: Spontaneous
  Country: FR (occurrence: FR)
  Receive Date: 20201030
  Receipt Date: 20201030
  Transmission Date: 20210114
  Serious: Yes (Hospitalization)
  Sender: FDA-Public Use
  Company Number: FR-BAUSCH-BL-2020-031401

PATIENT
  Age: 22 Year
  Sex: Female

DRUGS (9)
  1. DEXAMETHASONE. [Suspect]
     Active Substance: DEXAMETHASONE
     Indication: CAESAREAN SECTION
     Dosage: FREQUENCY: TOTAL
     Route: 042
  2. XYLOCAINE [Suspect]
     Active Substance: LIDOCAINE HYDROCHLORIDE
     Indication: DELIVERY
     Route: 050
  3. SYNTOCINON [Suspect]
     Active Substance: OXYTOCIN
     Indication: DELIVERY
     Route: 042
  4. PHENYLEPHRINE [Suspect]
     Active Substance: PHENYLEPHRINE HYDROCHLORIDE
     Indication: PRODUCT USED FOR UNKNOWN INDICATION
     Dosage: 1 UNSPECIFIED UNIT
     Route: 042
  5. CEFAZOLINE [Suspect]
     Active Substance: CEFAZOLIN SODIUM
     Indication: ANTIBIOTIC PROPHYLAXIS
     Dosage: FREQUENCY: TOTAL
     Route: 042
  6. MORPHINE (CHLORHYDRATE DE) [Concomitant]
     Active Substance: MORPHINE HYDROCHLORIDE
     Indication: DELIVERY
     Dosage: FEQUENCY: TOTAL
     Route: 050
  7. DROPERIDOL. [Suspect]
     Active Substance: DROPERIDOL
     Indication: PROPHYLAXIS OF NAUSEA AND VOMITING
     Dosage: FREQUENCY: TOTAL
     Route: 042
  8. SUFENTA [Concomitant]
     Active Substance: SUFENTANIL CITRATE
     Indication: DELIVERY
     Route: 050
  9. LEVOBUPIVACAINE BASE [Suspect]
     Active Substance: LEVOBUPIVACAINE
     Indication: DELIVERY
     Route: 050

REACTIONS (2)
  - Coma [Recovered/Resolved]
  - Mydriasis [Recovered/Resolved]

NARRATIVE: CASE EVENT DATE: 20200901
